FAERS Safety Report 5252257-5 (Version None)
Quarter: 2007Q1

REPORT INFORMATION
  Report Type: 
  Country: None (occurrence: None)
  Receive Date: 20070301
  Receipt Date: 20070220
  Transmission Date: 20070707
  Serious: Yes (Hospitalization)
  Sender: FDA-Public Use
  Company Number: HQWYE202120FEB07

PATIENT
  Age: 62 Year
  Sex: Male

DRUGS (5)
  1. CORDARONE [Suspect]
     Route: 048
  2. NEORECORMON [Suspect]
     Dosage: 8 (UNITS NOT PROVIDED) WEEKLY
     Route: 058
  3. NEORECORMON [Suspect]
     Dosage: ^8 KU^ PER DAY
     Route: 058
  4. LASIX [Suspect]
     Route: 048
  5. ALDACTONE [Suspect]
     Route: 048

REACTIONS (1)
  - HEPATIC ENCEPHALOPATHY [None]
